FAERS Safety Report 18705818 (Version 1)
Quarter: 2021Q1

REPORT INFORMATION
  Report Type: Spontaneous
  Country: US (occurrence: US)
  Receive Date: 20210105
  Receipt Date: 20210105
  Transmission Date: 20210419
  Serious: Yes (Death)
  Sender: FDA-Public Use
  Company Number: None

PATIENT
  Age: 69 Year
  Sex: Male

DRUGS (2)
  1. REPATHA [Suspect]
     Active Substance: EVOLOCUMAB
     Indication: HYPERLIPIDAEMIA
     Dosage: OTHER FREQUENCY:ONCE Q 2 WEEKS;?
     Route: 058
     Dates: start: 20200206, end: 20201013
  2. REPATHA [Suspect]
     Active Substance: EVOLOCUMAB
     Indication: ARTERIOSCLEROSIS
     Dosage: OTHER FREQUENCY:ONCE Q 2 WEEKS;?
     Route: 058
     Dates: start: 20200206, end: 20201013

REACTIONS (1)
  - Death [None]

NARRATIVE: CASE EVENT DATE: 20201110
